FAERS Safety Report 4970484-9 (Version None)
Quarter: 2006Q1

REPORT INFORMATION
  Report Type: 
  Country: None (occurrence: None)
  Receive Date: 20060127
  Receipt Date: 20051121
  Transmission Date: 20060701
  Serious: No
  Sender: FDA-Public Use
  Company Number: 012025

PATIENT
  Age: 72 Year
  Sex: Male

DRUGS (10)
  1. PRIALT [Suspect]
     Indication: PAIN
     Dosage: 0.15 UG, ONCE/HOUR, INTRATHECAL
     Route: 037
     Dates: start: 20050921, end: 20050928
  2. PRIALT [Suspect]
     Indication: PAIN
     Dosage: 0.15 UG, ONCE/HOUR, INTRATHECAL
     Route: 037
     Dates: start: 20050928, end: 20051007
  3. PRIALT [Suspect]
     Indication: PAIN
     Dosage: 0.15 UG, ONCE/HOUR, INTRATHECAL
     Route: 037
     Dates: start: 20051007
  4. DILAUDIND (HYDROMORPHONE HYDROCHLORIDE) [Concomitant]
  5. METHADONE HCL [Concomitant]
  6. LYRICA [Concomitant]
  7. MORPHINE [Concomitant]
  8. BUPIVACAINE [Concomitant]
  9. NEURONTIN [Concomitant]
  10. CLONAZEPAM [Concomitant]

REACTIONS (4)
  - BALANCE DISORDER [None]
  - DIZZINESS POSTURAL [None]
  - PAIN [None]
  - THERAPEUTIC RESPONSE UNEXPECTED [None]
